FAERS Safety Report 25349871 (Version 1)
Quarter: 2025Q2

REPORT INFORMATION
  Report Type: Spontaneous
  Country: US (occurrence: US)
  Receive Date: 20250523
  Receipt Date: 20250523
  Transmission Date: 20250717
  Serious: No
  Sender: BIOGEN
  Company Number: US-BIOGEN-2025BI01311673

PATIENT

DRUGS (1)
  1. ZURZUVAE [Suspect]
     Active Substance: ZURANOLONE
     Indication: Product used for unknown indication
     Route: 050
     Dates: start: 20250405

REACTIONS (2)
  - Loss of therapeutic response [Unknown]
  - Perinatal depression [Recovered/Resolved]

NARRATIVE: CASE EVENT DATE: 20250501
